FAERS Safety Report 8846084 (Version 4)
Quarter: 2012Q4

REPORT INFORMATION
  Report Type: 
  Country: US (occurrence: US)
  Receive Date: 20121017
  Receipt Date: 20121213
  Transmission Date: 20130627
  Serious: Yes (Hospitalization, Disabling, Other)
  Sender: FDA-Public Use
  Company Number: US-009507513-1107USA01787

PATIENT

DRUGS (10)
  1. FOSAMAX [Suspect]
     Indication: OSTEOPOROSIS
     Dosage: 70 mg, QW
     Route: 048
     Dates: start: 200110, end: 201106
  2. FOSAMAX [Suspect]
     Dosage: 10 UNK, qd
     Route: 048
     Dates: start: 2000, end: 200110
  3. FOSAMAX [Suspect]
     Dosage: UNK
     Dates: start: 201103, end: 201105
  4. FOSAMAX [Suspect]
     Indication: OSTEOPOROSIS
     Dosage: 10 mg, qd
     Route: 048
     Dates: start: 200004, end: 200110
  5. FOSAMAX [Suspect]
     Dosage: 70 mg, qw
     Route: 048
     Dates: start: 200110, end: 201106
  6. CALCIUM (UNSPECIFIED) [Concomitant]
     Dosage: UNK
     Dates: start: 2005
  7. CALCIUM (UNSPECIFIED) [Concomitant]
     Dosage: 50000 IU, qw
     Dates: end: 201108
  8. CALCIUM (UNSPECIFIED) [Concomitant]
     Dosage: 2000 IU, qd
     Dates: start: 201108
  9. CENTRUM SILVER [Concomitant]
     Dosage: UNK
     Dates: start: 2005
  10. VITAMIN D (UNSPECIFIED) [Concomitant]
     Dosage: 800 IU, bid
     Dates: start: 2005

REACTIONS (10)
  - Intramedullary rod insertion [Unknown]
  - Intramedullary rod insertion [Unknown]
  - Foot fracture [Not Recovered/Not Resolved]
  - Gait disturbance [Recovering/Resolving]
  - Femur fracture [Unknown]
  - Femur fracture [Recovered/Resolved]
  - Pain in extremity [Recovering/Resolving]
  - Fall [Recovering/Resolving]
  - Vitamin D deficiency [Unknown]
  - Impaired healing [Unknown]
